FAERS Safety Report 9144010 (Version 2)
Quarter: 2013Q2

REPORT INFORMATION
  Report Type: Spontaneous
  Country: US (occurrence: US)
  Receive Date: 20130306
  Receipt Date: 20130528
  Transmission Date: 20140414
  Serious: Yes (Hospitalization, Other)
  Sender: FDA-Public Use
  Company Number: US-ELI_LILLY_AND_COMPANY-US201302010393

PATIENT
  Age: 46 Year
  Sex: Male
  Weight: 131.7 kg

DRUGS (1)
  1. HUMULIN REGULAR [Suspect]
     Indication: DIABETES MELLITUS
     Dosage: UNK, TID
     Dates: start: 20120327

REACTIONS (1)
  - Myocardial infarction [Recovered/Resolved]
